FAERS Safety Report 17614188 (Version 2)
Quarter: 2020Q3

REPORT INFORMATION
  Report Type: Report from Study
  Country: US (occurrence: US)
  Receive Date: 20200402
  Receipt Date: 20200713
  Transmission Date: 20201102
  Serious: No
  Sender: FDA-Public Use
  Company Number: NVSC2020US088742

PATIENT
  Sex: Female

DRUGS (1)
  1. GLATOPA [Suspect]
     Active Substance: GLATIRAMER ACETATE
     Indication: PRODUCT USED FOR UNKNOWN INDICATION
     Dosage: 20 MG, QD
     Route: 065

REACTIONS (6)
  - Injection site swelling [Unknown]
  - Wrong technique in device usage process [Unknown]
  - Injection site reaction [Unknown]
  - Injection site pain [Unknown]
  - Multiple use of single-use product [Unknown]
  - Device issue [Unknown]
